FAERS Safety Report 5171121-3 (Version None)
Quarter: 2006Q4

REPORT INFORMATION
  Report Type: 
  Country: None (occurrence: None)
  Receive Date: 20061206
  Receipt Date: 20061206
  Transmission Date: 20070319
  Serious: No
  Sender: FDA-Public Use
  Company Number: None

PATIENT
  Age: 43 Year
  Sex: Male
  Weight: 88.4514 kg

DRUGS (3)
  1. ZANTAC [Suspect]
  2. CRESTOR [Suspect]
  3. . [Concomitant]

REACTIONS (1)
  - CORNEAL DYSTROPHY [None]
